FAERS Safety Report 7201155-6 (Version None)
Quarter: 2010Q4

REPORT INFORMATION
  Report Type: 
  Country: None (occurrence: None)
  Receive Date: 20101229
  Receipt Date: 20101220
  Transmission Date: 20110411
  Serious: No
  Sender: FDA-Public Use
  Company Number: US-BIOGENIDEC-2010BI044851

PATIENT
  Age: 53 Year
  Sex: Female

DRUGS (2)
  1. TYSABRI [Suspect]
     Indication: MULTIPLE SCLEROSIS
     Route: 042
     Dates: start: 20100714
  2. AMPYRA [Concomitant]

REACTIONS (9)
  - BURNING SENSATION [None]
  - DIARRHOEA [None]
  - EXCORIATION [None]
  - FACE INJURY [None]
  - FALL [None]
  - INFLUENZA [None]
  - NASOPHARYNGITIS [None]
  - PERIORBITAL HAEMATOMA [None]
  - VOMITING [None]
